FAERS Safety Report 7610744-6 (Version None)
Quarter: 2011Q3

REPORT INFORMATION
  Report Type: 
  Country: None (occurrence: None)
  Receive Date: 20110715
  Receipt Date: 20110706
  Transmission Date: 20111222
  Serious: Yes (Hospitalization)
  Sender: FDA-Public Use
  Company Number: IT-ELI_LILLY_AND_COMPANY-IT201106002501

PATIENT
  Sex: Male

DRUGS (5)
  1. HUMULIN R [Suspect]
     Indication: HYPERGLYCAEMIA
     Dosage: 100 IU, QD
     Route: 042
     Dates: start: 20110526, end: 20110529
  2. TENACID [Concomitant]
     Dosage: 1500 ML, UNK
     Route: 042
  3. IRBESARTAN + HYDROCHLOROTHIAZIDE [Concomitant]
     Dosage: UNK
     Route: 048
  4. EMAGEL [Concomitant]
     Dosage: 3 ML, UNK
     Route: 042
  5. ALIFLUS [Concomitant]
     Dosage: 2 DF, BID
     Route: 055

REACTIONS (2)
  - HYPERPYREXIA [None]
  - STAPHYLOCOCCAL INFECTION [None]
